FAERS Safety Report 9411640 (Version 1)
Quarter: 2013Q3

REPORT INFORMATION
  Report Type: Spontaneous
  Country: US (occurrence: None)
  Receive Date: 20130719
  Receipt Date: 20130719
  Transmission Date: 20140515
  Serious: Yes (Death)
  Sender: FDA-Public Use
  Company Number: None

PATIENT
  Sex: Male
  Weight: 58.97 kg

DRUGS (10)
  1. PRADAXA [Suspect]
     Indication: ANTICOAGULANT THERAPY
     Dosage: 150 MG BID PO
     Route: 048
  2. DIGOXIN [Concomitant]
  3. DILTIAZEM [Concomitant]
  4. FUROSEMIDE [Concomitant]
  5. HYDROXYZINE PAMOATE [Concomitant]
  6. ISOSORBIDE MONONITRATE [Concomitant]
  7. METOPROLOL ER [Concomitant]
  8. POTASSIUM CHLORIDE [Concomitant]
  9. SIMVASTATIN [Concomitant]
  10. TRAMADOL HCL [Concomitant]

REACTIONS (7)
  - Abdominal pain [None]
  - Cardiac arrest [None]
  - Splenomegaly [None]
  - Gastric disorder [None]
  - Anaemia [None]
  - International normalised ratio increased [None]
  - Splenic rupture [None]
